FAERS Safety Report 13407270 (Version 2)
Quarter: 2017Q3

REPORT INFORMATION
  Report Type: Spontaneous
  Country: US (occurrence: US)
  Receive Date: 20170405
  Receipt Date: 20170705
  Transmission Date: 20171127
  Serious: Yes (Hospitalization)
  Sender: FDA-Public Use
  Company Number: US-B.I. PHARMACEUTICALS,INC./RIDGEFIELD-2017-BI-018505

PATIENT
  Age: 66 Year
  Sex: Female
  Weight: 83.64 kg

DRUGS (4)
  1. SPIRIVA [Suspect]
     Active Substance: TIOTROPIUM BROMIDE MONOHYDRATE
     Indication: CHRONIC OBSTRUCTIVE PULMONARY DISEASE
     Dosage: ONCE DAILY;  FORM STRENGTH: 18 MCG; FORMULATION: CAPSULE? ADMINISTRATION CORRECT? YES ?ACTION(S) TAK
     Route: 055
     Dates: start: 2013
  2. PENTASA [Concomitant]
     Active Substance: MESALAMINE
     Indication: CROHN^S DISEASE
     Dosage: 4 TIMES A DAY;  FORM STRENGTH: 500MG; FORMULATION: CAPSULE
     Route: 048
     Dates: start: 2003
  3. SPIRIVA [Suspect]
     Active Substance: TIOTROPIUM BROMIDE MONOHYDRATE
     Route: 048
     Dates: start: 20170330, end: 20170330
  4. HUMIRA [Concomitant]
     Active Substance: ADALIMUMAB
     Indication: CROHN^S DISEASE
     Dosage: EVERY 14 DAYS;  FORM STRENGTH: 40MG; FORMULATION: SUBCUTANEOUS
     Route: 058
     Dates: start: 2012

REACTIONS (4)
  - Wound infection [Recovered/Resolved]
  - Intestinal obstruction [Recovered/Resolved]
  - Incorrect route of drug administration [Recovered/Resolved]
  - Dysphonia [Not Recovered/Not Resolved]

NARRATIVE: CASE EVENT DATE: 2015
